FAERS Safety Report 20516635 (Version 2)
Quarter: 2022Q2

REPORT INFORMATION
  Report Type: Report from Study
  Country: US (occurrence: US)
  Receive Date: 20220225
  Receipt Date: 20220401
  Transmission Date: 20220721
  Serious: Yes (Hospitalization)
  Sender: FDA-Public Use
  Company Number: US-SERVIER-S22000424

PATIENT

DRUGS (8)
  1. PEGASPARGASE [Suspect]
     Active Substance: PEGASPARGASE
     Indication: Acute lymphocytic leukaemia
     Dosage: 2500 IU
     Route: 042
     Dates: start: 20190906
  2. PEGASPARGASE [Suspect]
     Active Substance: PEGASPARGASE
     Dosage: 2500 IU
     Route: 042
     Dates: start: 20200420
  3. RUXOLITINIB PHOSPHATE [Suspect]
     Active Substance: RUXOLITINIB PHOSPHATE
     Indication: Acute lymphocytic leukaemia
     Dosage: 80 MG, BID
     Route: 048
     Dates: start: 20190826
  4. RUXOLITINIB PHOSPHATE [Suspect]
     Active Substance: RUXOLITINIB PHOSPHATE
     Dosage: 80 MG, BID
     Route: 048
     Dates: start: 20200504
  5. METHOTREXATE [Suspect]
     Active Substance: METHOTREXATE
     Indication: Acute lymphocytic leukaemia
     Dosage: 15 MG
     Route: 037
     Dates: start: 20200420
  6. METHOTREXATE [Suspect]
     Active Substance: METHOTREXATE
     Dosage: 330 MG
     Route: 042
     Dates: start: 20200420
  7. VINCRISTINE SULFATE [Suspect]
     Active Substance: VINCRISTINE SULFATE
     Indication: Acute lymphocytic leukaemia
     Dosage: 2 MG, ONE DOSE
     Route: 042
     Dates: start: 20200420
  8. SULFAMETHOXAZOLE\TRIMETHOPRIM [Concomitant]
     Active Substance: SULFAMETHOXAZOLE\TRIMETHOPRIM
     Indication: Product used for unknown indication
     Dosage: UNK
     Route: 065

REACTIONS (2)
  - Pyrexia [Recovered/Resolved]
  - Pneumonia [Recovered/Resolved]

NARRATIVE: CASE EVENT DATE: 20200424
